FAERS Safety Report 10611489 (Version 2)
Quarter: 2015Q1

REPORT INFORMATION
  Report Type: Spontaneous
  Country: US (occurrence: US)
  Receive Date: 20141126
  Receipt Date: 20150121
  Transmission Date: 20150720
  Serious: Yes (Other)
  Sender: FDA-Public Use
  Company Number: US-RB PHARMACEUTICALS LIMITED-RB-73828-2014

PATIENT
  Sex: Female

DRUGS (5)
  1. BUPRENORPHINE [Suspect]
     Active Substance: BUPRENORPHINE
     Dosage: 1 MG, UNK
     Route: 060
     Dates: start: 201103, end: 20140218
  2. ABILIFY [Concomitant]
     Active Substance: ARIPIPRAZOLE
     Indication: MENTAL DISORDER
     Dosage: 20 MG, QD
     Route: 048
     Dates: start: 2006
  3. CLONAZEPAM. [Concomitant]
     Active Substance: CLONAZEPAM
     Indication: SUICIDAL IDEATION
     Dosage: 0.5 MG, TID
     Route: 065
     Dates: start: 2006
  4. BUPRENORPHINE [Suspect]
     Active Substance: BUPRENORPHINE
     Indication: DEPRESSION
     Dosage: UNIT DOSE- 0.2 MG TABLETS. DOSE ADMINISTERED RANGED IN BETWEEN 0.2-1.6 MG PER DAY
     Route: 065
     Dates: end: 201103
  5. EFFEXOR [Concomitant]
     Active Substance: VENLAFAXINE HYDROCHLORIDE
     Indication: MENTAL DISORDER
     Dosage: 225 MG, QD
     Route: 048
     Dates: start: 2006

REACTIONS (3)
  - Suicidal ideation [Not Recovered/Not Resolved]
  - Off label use [Recovered/Resolved]
  - Condition aggravated [Not Recovered/Not Resolved]

NARRATIVE: CASE EVENT DATE: 201103
